FAERS Safety Report 8360944-5 (Version None)
Quarter: 2012Q2

REPORT INFORMATION
  Report Type: 
  Country: None (occurrence: None)
  Receive Date: 20120515
  Receipt Date: 20120508
  Transmission Date: 20120825
  Serious: No
  Sender: FDA-Public Use
  Company Number: US-ASTRAZENECA-2012SE29865

PATIENT
  Age: 92 Year
  Sex: Male

DRUGS (3)
  1. TOPROL-XL [Suspect]
     Indication: CARDIAC DISORDER
     Route: 048
     Dates: start: 20100101
  2. TOPROL-XL [Suspect]
     Route: 048
     Dates: start: 20100101
  3. IMDUR [Concomitant]
     Indication: ANGINA PECTORIS

REACTIONS (1)
  - FEELING HOT [None]
